FAERS Safety Report 4430526-6 (Version None)
Quarter: 2004Q3

REPORT INFORMATION
  Report Type: 
  Country: None (occurrence: None)
  Receive Date: 20040721
  Receipt Date: 20031212
  Transmission Date: 20050211
  Serious: Yes (Life-Threatening)
  Sender: FDA-Public Use
  Company Number: OMPQ-PR-0312S-0957(0)

PATIENT
  Sex: Male

DRUGS (1)
  1. OMNIPAQUE 180 [Suspect]
     Indication: CARCINOMA
     Dosage: 150 ML, SINGLE DOSE, I.V.
     Route: 042
     Dates: start: 20031212, end: 20031212

REACTIONS (2)
  - CONVULSION [None]
  - HYPERSENSITIVITY [None]
